FAERS Safety Report 10257827 (Version 1)
Quarter: 2014Q2

REPORT INFORMATION
  Report Type: Spontaneous
  Country: US (occurrence: US)
  Receive Date: 20140625
  Receipt Date: 20140625
  Transmission Date: 20141212
  Serious: No
  Sender: FDA-Public Use
  Company Number: US-BAYER-2014-091278

PATIENT
  Age: 67 Year
  Sex: Female
  Weight: 91 kg

DRUGS (4)
  1. ALEVE CAPLET [Suspect]
     Indication: ANALGESIC THERAPY
     Dosage: 4-8 DF, PRN
     Route: 048
     Dates: start: 2004
  2. ALEVE CAPLET [Suspect]
     Indication: ANALGESIC THERAPY
     Dosage: 8 DF, UNK
     Route: 048
     Dates: start: 20140614, end: 20140614
  3. ALEVE CAPLET [Suspect]
     Indication: ANALGESIC THERAPY
     Dosage: 4 DF, UNK
     Route: 048
     Dates: start: 20140615, end: 20140615
  4. ALEVE CAPLET [Suspect]
     Indication: ANALGESIC THERAPY
     Dosage: 8 DF, UNK
     Route: 048
     Dates: start: 20140616, end: 20140616

REACTIONS (2)
  - Extra dose administered [Unknown]
  - Drug ineffective [None]
